FAERS Safety Report 8765714 (Version 2)
Quarter: 2012Q4

REPORT INFORMATION
  Report Type: 
  Country: BR (occurrence: BR)
  Receive Date: 20120903
  Receipt Date: 20120903
  Transmission Date: 20130627
  Serious: Yes (Other)
  Sender: FDA-Public Use
  Company Number: PHHY2012BR073379

PATIENT
  Age: 56 Year
  Sex: Male

DRUGS (6)
  1. MYFORTIC [Suspect]
     Dosage: 360 mg, BID
  2. EVEROLIMUS [Suspect]
     Dosage: 2.25 mg, UNK
  3. EVEROLIMUS [Suspect]
     Dosage: 2.5 mg, UNK
  4. MYCOPHENOLATE MOFETIL [Concomitant]
  5. PREDNISONE [Concomitant]
     Dosage: 5 mg, UNK
  6. TACROLIMUS [Concomitant]
     Dosage: 3 mg, BID

REACTIONS (5)
  - Bone marrow toxicity [Unknown]
  - Apoptosis [Unknown]
  - Leukopenia [Recovering/Resolving]
  - Haemoglobin decreased [Unknown]
  - Blood creatinine increased [Unknown]
